FAERS Safety Report 9457332 (Version 7)
Quarter: 2014Q1

REPORT INFORMATION
  Report Type: Spontaneous
  Country: US (occurrence: US)
  Receive Date: 20130814
  Receipt Date: 20140110
  Transmission Date: 20141002
  Serious: Yes (Death, Hospitalization, Other)
  Sender: FDA-Public Use
  Company Number: PHEH2010US003947

PATIENT
  Age: 64 Year
  Sex: Female

DRUGS (34)
  1. AREDIA [Suspect]
     Indication: PLASMA CELL MYELOMA IN REMISSION
     Dosage: 90 MG, QMO
     Route: 042
     Dates: start: 19951229, end: 20020329
  2. AREDIA [Suspect]
     Indication: HYPERCALCAEMIA
  3. ZOMETA [Suspect]
     Dosage: 4 MG
     Route: 042
     Dates: start: 20020502
  4. MELPHALAN [Suspect]
  5. PROTONIX ^PHARMACIA^ [Concomitant]
  6. DURAGESIC [Concomitant]
  7. ALPRAZOLAM [Concomitant]
  8. PAROXETINE [Concomitant]
  9. PIROXICAM [Concomitant]
  10. CODEINE [Concomitant]
  11. TICLOPIDINE [Concomitant]
     Indication: TRANSIENT ISCHAEMIC ATTACK
  12. FLAGYL [Concomitant]
  13. GATIFLOXACIN [Concomitant]
  14. PRILOSEC [Concomitant]
  15. CYMBALTA [Concomitant]
  16. ADVAIR [Concomitant]
  17. PREDNISONE [Concomitant]
  18. SPIRIVA [Concomitant]
  19. HYDROCHLOROTHIAZIDE [Concomitant]
  20. STEROIDS NOS [Concomitant]
  21. ASPIRIN [Concomitant]
  22. IMODIUM [Concomitant]
  23. LANTUS [Concomitant]
  24. LIDODERM [Concomitant]
  25. LORAZEPAM [Concomitant]
  26. OXYCONTIN [Concomitant]
  27. PEPCID [Concomitant]
  28. REMERON [Concomitant]
  29. NOVOLOG [Concomitant]
  30. ZOLPIDEM [Concomitant]
  31. COLACE [Concomitant]
  32. LASIX [Concomitant]
  33. BENZODIAZEPINES [Concomitant]
  34. MIRALAX [Concomitant]

REACTIONS (186)
  - Dyspnoea [Fatal]
  - Arthralgia [Unknown]
  - Chest pain [Unknown]
  - Supraventricular tachycardia [Unknown]
  - Sepsis syndrome [Unknown]
  - Atrial fibrillation [Unknown]
  - Pneumonia pneumococcal [Unknown]
  - Pleural effusion [Unknown]
  - Osteonecrosis of jaw [Unknown]
  - Injury [Unknown]
  - Pain [Unknown]
  - Anxiety [Unknown]
  - Anhedonia [Unknown]
  - Physical disability [Unknown]
  - Mouth ulceration [Unknown]
  - Abscess oral [Unknown]
  - Exposed bone in jaw [Recovering/Resolving]
  - Paraesthesia oral [Unknown]
  - Infection [Recovering/Resolving]
  - Bone loss [Unknown]
  - Venous thrombosis [Unknown]
  - Soft tissue disorder [Unknown]
  - Lymphoedema [Unknown]
  - Apical granuloma [Unknown]
  - Hypoaesthesia oral [Unknown]
  - Purulent discharge [Unknown]
  - Primary sequestrum [Recovering/Resolving]
  - Swelling [Recovering/Resolving]
  - Deformity [Unknown]
  - Oral candidiasis [Unknown]
  - Osteoradionecrosis [Unknown]
  - Pain in jaw [Unknown]
  - Gingival swelling [Unknown]
  - Osteosclerosis [Unknown]
  - Osteomyelitis [Unknown]
  - Osteolysis [Unknown]
  - Device failure [Unknown]
  - Depression [Unknown]
  - Respiratory failure [Unknown]
  - Respiratory tract infection [Unknown]
  - Arthritis [Unknown]
  - Bipolar disorder [Unknown]
  - Pyrexia [Unknown]
  - Urinary tract infection [Unknown]
  - Abscess neck [Recovering/Resolving]
  - Bone lesion [Unknown]
  - Spinal deformity [Unknown]
  - Intervertebral disc protrusion [Unknown]
  - Lumbar spinal stenosis [Unknown]
  - Chronic obstructive pulmonary disease [Unknown]
  - Fistula discharge [Unknown]
  - Osteoarthritis [Unknown]
  - Hepatomegaly [Unknown]
  - Anaemia [Unknown]
  - Blood creatinine increased [Unknown]
  - Glomerular filtration rate decreased [Unknown]
  - Red blood cell count decreased [Unknown]
  - Haemoglobin decreased [Unknown]
  - Malignant melanoma [Unknown]
  - Second primary malignancy [Unknown]
  - Atelectasis [Recovered/Resolved]
  - Plasma cell myeloma recurrent [Unknown]
  - Osteoporosis [Unknown]
  - Aortic calcification [Unknown]
  - Compression fracture [Unknown]
  - Back pain [Unknown]
  - Scoliosis [Unknown]
  - Intervertebral disc disorder [Unknown]
  - Subcutaneous abscess [Unknown]
  - Hip fracture [Unknown]
  - Cardiomegaly [Unknown]
  - Leukopenia [Unknown]
  - Haematoma [Unknown]
  - Myocardial infarction [Unknown]
  - Neuropathy peripheral [Unknown]
  - Patellofemoral pain syndrome [Unknown]
  - Coronary artery disease [Unknown]
  - Oropharyngeal candidiasis [Unknown]
  - Herpes zoster [Unknown]
  - Systemic inflammatory response syndrome [Recovered/Resolved]
  - Asthma [Unknown]
  - Gastrointestinal haemorrhage [Unknown]
  - Type 2 diabetes mellitus [Unknown]
  - Pulmonary hypertension [Unknown]
  - Pelvic fracture [Unknown]
  - Fall [Unknown]
  - Immunosuppression [Unknown]
  - Bradycardia [Unknown]
  - Tachycardia [Unknown]
  - Heart rate irregular [Unknown]
  - Emphysema [Unknown]
  - Autoimmune disorder [Unknown]
  - Renal failure chronic [Unknown]
  - Drug hypersensitivity [Unknown]
  - Cardiac failure congestive [Unknown]
  - Cerebral atrophy [Unknown]
  - Rib fracture [Unknown]
  - Osteopenia [Unknown]
  - Hypertension [Unknown]
  - Gout [Unknown]
  - Epistaxis [Unknown]
  - Urinary retention [Unknown]
  - Wound [Unknown]
  - Carpal tunnel syndrome [Unknown]
  - Myalgia [Unknown]
  - Claustrophobia [Unknown]
  - Arthropathy [Unknown]
  - Joint stiffness [Unknown]
  - Joint dislocation [Unknown]
  - Meniscus injury [Unknown]
  - Ligament rupture [Unknown]
  - Synovial cyst [Unknown]
  - Bone cyst [Unknown]
  - Meniscal degeneration [Unknown]
  - Addison^s disease [Unknown]
  - Groin pain [Unknown]
  - Bone erosion [Unknown]
  - Rheumatoid arthritis [Unknown]
  - Pubis fracture [Unknown]
  - Fractured sacrum [Unknown]
  - Leukaemia [Unknown]
  - Arteriosclerosis coronary artery [Not Recovered/Not Resolved]
  - Vascular calcification [Unknown]
  - Incontinence [Unknown]
  - Pulmonary congestion [Unknown]
  - Nephrolithiasis [Unknown]
  - Deafness [Unknown]
  - Cough [Unknown]
  - Interstitial lung disease [Unknown]
  - Mental status changes [Unknown]
  - Abdominal pain [Unknown]
  - Lethargy [Unknown]
  - Inguinal hernia [Unknown]
  - Cataract [Unknown]
  - Bladder cancer [Unknown]
  - Adrenal haemorrhage [Unknown]
  - Pneumonia [Unknown]
  - Clubbing [Unknown]
  - Musculoskeletal pain [Unknown]
  - Neutropenia [Unknown]
  - Aortic disorder [Unknown]
  - Pericardial effusion [Unknown]
  - Exostosis [Unknown]
  - Lymphadenopathy mediastinal [Unknown]
  - Lung infiltration [Unknown]
  - Febrile neutropenia [Unknown]
  - Road traffic accident [Unknown]
  - Intestinal obstruction [Unknown]
  - Clostridium difficile colitis [Unknown]
  - Thrombocytopenia [Unknown]
  - Ecchymosis [Unknown]
  - Bradyarrhythmia [Unknown]
  - Pulmonary embolism [Unknown]
  - Osteitis [Unknown]
  - Fungal infection [Unknown]
  - Ventricular hypertrophy [Unknown]
  - Mitral valve calcification [Unknown]
  - Mitral valve sclerosis [Unknown]
  - Mitral valve incompetence [Unknown]
  - Left atrial dilatation [Unknown]
  - Tricuspid valve incompetence [Unknown]
  - Pulmonary valve incompetence [Unknown]
  - Hypotension [Unknown]
  - Dehydration [Unknown]
  - Atrioventricular block second degree [Unknown]
  - Kyphosis [Unknown]
  - Long QT syndrome [Unknown]
  - Nephritis [Unknown]
  - Sinus bradycardia [Unknown]
  - Aortic valve incompetence [Unknown]
  - Flank pain [Unknown]
  - Pulmonary oedema [Unknown]
  - Bronchitis chronic [Unknown]
  - Arrhythmia [Unknown]
  - Transient ischaemic attack [Unknown]
  - Respiratory distress [Unknown]
  - Abdominal distension [Unknown]
  - Sick sinus syndrome [Unknown]
  - Altered state of consciousness [Unknown]
  - Leukocytosis [Unknown]
  - Laceration [Unknown]
  - Headache [Unknown]
  - Fatigue [Unknown]
  - Lactic acidosis [Unknown]
  - Electrolyte imbalance [Unknown]
  - Gastrooesophageal reflux disease [Unknown]
